FAERS Safety Report 4975400-1 (Version None)
Quarter: 2006Q2

REPORT INFORMATION
  Report Type: 
  Country: None (occurrence: None)
  Receive Date: 20060418
  Receipt Date: 20060309
  Transmission Date: 20061013
  Serious: Yes (Other)
  Sender: FDA-Public Use
  Company Number: BR-JNJFOC-20060305778

PATIENT
  Age: 4 Year
  Sex: Male
  Weight: 13 kg

DRUGS (4)
  1. HALDOL [Suspect]
     Indication: AGGRESSION
  2. HALDOL [Suspect]
     Dosage: 5 DROPS IN THE MORNING AND 10 DROPS AT NIGHT
  3. HALDOL [Suspect]
  4. DIPYRONE INJ [Concomitant]
     Indication: PAIN

REACTIONS (5)
  - CRYING [None]
  - INCORRECT DOSE ADMINISTERED [None]
  - IRRITABILITY [None]
  - SOMNOLENCE [None]
  - TREMOR [None]
